FAERS Safety Report 17488815 (Version 1)
Quarter: 2020Q1

REPORT INFORMATION
  Report Type: Spontaneous
  Country: US (occurrence: US)
  Receive Date: 20200220
  Receipt Date: 20200220
  Transmission Date: 20200409
  Serious: Yes (Hospitalization)
  Sender: FDA-Public Use
  Company Number: None

PATIENT
  Age: 65 Year
  Sex: Male
  Weight: 79 kg

DRUGS (1)
  1. TACROLIMUS (TACROLIMUS 0.1% OINT, TOP) [Suspect]
     Active Substance: TACROLIMUS
     Indication: PRURITUS
     Dates: start: 20190104, end: 20190625

REACTIONS (1)
  - Dermatitis contact [None]

NARRATIVE: CASE EVENT DATE: 20190623
